FAERS Safety Report 21436795 (Version 1)
Quarter: 2022Q4

REPORT INFORMATION
  Report Type: Report from Study
  Country: DE (occurrence: DE)
  Receive Date: 20221010
  Receipt Date: 20221010
  Transmission Date: 20230113
  Serious: Yes (Hospitalization)
  Sender: FDA-Public Use
  Company Number: DE-ABBVIE-4146066

PATIENT
  Age: 67 Year
  Sex: Female

DRUGS (10)
  1. CARBIDOPA\LEVODOPA [Suspect]
     Active Substance: CARBIDOPA\LEVODOPA
     Indication: Parkinson^s disease
     Dosage: MD: 4.5ML; CRD: 2.5ML/H; CRN: 1.2ML/H; ED: 1.5ML
     Dates: start: 20180517
  2. CARBIDOPA\LEVODOPA [Suspect]
     Active Substance: CARBIDOPA\LEVODOPA
  3. TASMAR [Concomitant]
     Active Substance: TOLCAPONE
     Indication: Product used for unknown indication
  4. LEVOTHYROXINE SODIUM [Concomitant]
     Active Substance: LEVOTHYROXINE SODIUM
     Indication: Product used for unknown indication
  5. TOLCAPONE [Concomitant]
     Active Substance: TOLCAPONE
     Indication: Product used for unknown indication
     Dosage: TIME INTERVAL: 0.33333333 DAYS
  6. BENSERAZIDE HYDROCHLORIDE\LEVODOPA [Concomitant]
     Active Substance: BENSERAZIDE HYDROCHLORIDE\LEVODOPA
     Indication: Product used for unknown indication
  7. VOLTAREN [Concomitant]
     Active Substance: DICLOFENAC SODIUM
     Indication: Product used for unknown indication
  8. OPICAPONE [Concomitant]
     Active Substance: OPICAPONE
     Indication: Product used for unknown indication
  9. Belthyrox [Concomitant]
     Indication: Product used for unknown indication
  10. FOLIC ACID [Concomitant]
     Active Substance: FOLIC ACID
     Indication: Product used for unknown indication

REACTIONS (18)
  - Sleep disorder [Unknown]
  - Illness [Unknown]
  - Anaemia [Unknown]
  - Hiatus hernia [Unknown]
  - Memory impairment [Unknown]
  - Posterior cortical atrophy [Unknown]
  - Bartholin^s cyst [Unknown]
  - Stoma site infection [Unknown]
  - Restlessness [Recovering/Resolving]
  - Device dislocation [Not Recovered/Not Resolved]
  - Hospitalisation [Recovered/Resolved]
  - Drug level decreased [Unknown]
  - Stoma site inflammation [Unknown]
  - Stoma site erythema [Unknown]
  - Mobility decreased [Unknown]
  - Palpitations [Unknown]
  - Dyskinesia [Unknown]
  - Respiratory symptom [Unknown]

NARRATIVE: CASE EVENT DATE: 20200701
